FAERS Safety Report 14654206 (Version 4)
Quarter: 2018Q3

REPORT INFORMATION
  Report Type: Spontaneous
  Country: FI (occurrence: FI)
  Receive Date: 20180319
  Receipt Date: 20180719
  Transmission Date: 20181010
  Serious: Yes (Hospitalization)
  Sender: FDA-Public Use
  Company Number: FI-NOVOPROD-589297

PATIENT
  Age: 34 Year
  Sex: Female

DRUGS (6)
  1. VICTOZA [Suspect]
     Active Substance: LIRAGLUTIDE
     Dosage: UNK
     Route: 065
     Dates: start: 20180108
  2. LEVEMIR [Concomitant]
     Active Substance: INSULIN DETEMIR
     Dosage: (STARTING DAILY DOSE OF 55 UNITS IN THE MORNING AND EVENING)
     Route: 065
     Dates: start: 201709
  3. HUMALOG [Concomitant]
     Active Substance: INSULIN LISPRO
     Indication: TYPE 1 DIABETES MELLITUS
     Dosage: UNK
  4. LEVEMIR [Concomitant]
     Active Substance: INSULIN DETEMIR
     Indication: TYPE 1 DIABETES MELLITUS
     Dosage: 50 U, QD
     Route: 065
     Dates: start: 201708
  5. VICTOZA [Suspect]
     Active Substance: LIRAGLUTIDE
     Indication: TYPE 1 DIABETES MELLITUS
     Dosage: 0.6 MG(FIRST )
     Route: 065
     Dates: start: 201708
  6. VICTOZA [Suspect]
     Active Substance: LIRAGLUTIDE
     Dosage: 1.2 MG (AFTER A WEEK )
     Route: 065
     Dates: end: 201712

REACTIONS (5)
  - Decreased appetite [Unknown]
  - Abdominal pain [Recovered/Resolved]
  - Off label use [Unknown]
  - Diarrhoea [Recovered/Resolved]
  - Drug ineffective for unapproved indication [Unknown]

NARRATIVE: CASE EVENT DATE: 2017
